FAERS Safety Report 8072304-5 (Version None)
Quarter: 2012Q1

REPORT INFORMATION
  Report Type: 
  Country: None (occurrence: None)
  Receive Date: 20120126
  Receipt Date: 20120118
  Transmission Date: 20120608
  Serious: Yes (Hospitalization, Disabling, Other)
  Sender: FDA-Public Use
  Company Number: US-ASTELLAS-2012US000520

PATIENT
  Sex: Male
  Weight: 125 kg

DRUGS (47)
  1. PROGRAF [Suspect]
     Dosage: 30 TO 6 MCG PER HOUR
     Route: 042
     Dates: start: 20080718, end: 20080727
  2. METOPROLOL [Concomitant]
     Dosage: 2.5-10 MG
     Route: 042
     Dates: start: 20080720, end: 20080723
  3. METOPROLOL [Concomitant]
     Dosage: 25 MG, TID
     Route: 048
     Dates: start: 20080728, end: 20080729
  4. SENNA [Concomitant]
     Indication: PRODUCT USED FOR UNKNOWN INDICATION
     Dosage: 2 DF, UID/QD
     Route: 048
  5. MAGNESIUM SULFATE [Concomitant]
     Indication: HYPOMAGNESAEMIA
     Dosage: 16-36 MG
     Route: 042
     Dates: start: 20080527, end: 20080724
  6. FLUCONAZOLE [Concomitant]
     Dosage: 200-400 MG DAILY
     Route: 048
     Dates: start: 20080513, end: 20080718
  7. MAGNESIUM OXIDE [Concomitant]
     Indication: PRODUCT USED FOR UNKNOWN INDICATION
     Dosage: 400 MG, BID
     Route: 048
  8. AMBIEN [Concomitant]
     Indication: INSOMNIA
     Dosage: 5-10 MG AT BEDTIME AS NEEDED
     Route: 048
     Dates: start: 20080223, end: 20080718
  9. COMPAZINE [Suspect]
     Indication: NAUSEA
     Dosage: 5 - 10 MG Q4 OR 6 HOURS AS NEEDED
     Route: 048
     Dates: start: 20080218, end: 20080709
  10. ACYCLOVIR [Concomitant]
     Indication: HERPES VIRUS INFECTION
     Dosage: 800 MG, Q12 HOURS
     Route: 048
  11. FLUCONAZOLE [Concomitant]
     Indication: FUNGAL INFECTION
     Dosage: 200 MG, BID
     Route: 048
  12. METOPROLOL [Concomitant]
     Indication: ATRIAL FIBRILLATION
     Dosage: 50 MG, Q12 HOURS
     Route: 065
  13. ENALAPRIL MALEATE [Concomitant]
     Indication: ATRIAL FIBRILLATION
  14. ENALAPRIL MALEATE [Concomitant]
     Indication: HYPERTENSION
  15. PHOSLO [Concomitant]
     Indication: PRODUCT USED FOR UNKNOWN INDICATION
     Dosage: 3 DF, TID WITH MEALS
     Route: 048
  16. DOCUSATE [Concomitant]
     Indication: PRODUCT USED FOR UNKNOWN INDICATION
     Dosage: 250 MG, UID/QD
     Route: 048
  17. GANCICLOVIR [Suspect]
     Indication: CYTOMEGALOVIRUS INFECTION
     Dosage: 215 MG, UID/QD
     Route: 042
     Dates: start: 20080725
  18. COUMADIN [Concomitant]
     Indication: PULMONARY EMBOLISM
     Dosage: 5 MG, UID/QD
     Route: 048
  19. BECLOMETHASONE DIPROPIONATE [Concomitant]
     Indication: GRAFT VERSUS HOST DISEASE
     Dosage: 1 MG, QID
     Route: 048
     Dates: start: 20080630, end: 20080718
  20. FLUCONAZOLE [Concomitant]
     Dosage: 400 MG, UID/QD
     Route: 042
     Dates: start: 20080719
  21. ENALAPRIL MALEATE [Concomitant]
     Indication: ATRIAL FLUTTER
     Dosage: 5-10 MG, UID/QD
     Route: 048
     Dates: start: 20080623, end: 20080718
  22. CALCIUM W/VITAMIN D [Concomitant]
     Indication: MEDICAL DIET
     Dosage: 1 DF, UID/QD
     Route: 048
     Dates: start: 20080225, end: 20080718
  23. MULTI-VITAMIN [Concomitant]
     Indication: PRODUCT USED FOR UNKNOWN INDICATION
     Dosage: 1 DF, UID/QD
     Route: 048
  24. ALBUTEROL [Concomitant]
     Indication: PRODUCT USED FOR UNKNOWN INDICATION
     Dosage: 2 PUFFS, PRN
     Route: 055
  25. BENADRYL [Concomitant]
     Indication: NAUSEA
  26. BECLOMETHASONE DIPROPIONATE [Concomitant]
     Dosage: 1 MG, QID
     Route: 048
     Dates: start: 20080728
  27. PREDNISONE [Concomitant]
     Indication: GRAFT VERSUS HOST DISEASE
     Dosage: 30-95 MG TAPER
     Route: 048
     Dates: start: 20080630, end: 20080718
  28. PREDNISONE [Concomitant]
     Dosage: 50-20 MG TAPER
     Route: 048
     Dates: start: 20080730
  29. BACTRIM [Suspect]
     Indication: PNEUMOCYSTIS JIROVECI PNEUMONIA
     Dosage: 160 MG, BID
     Route: 042
     Dates: start: 20080719, end: 20080729
  30. METOPROLOL [Concomitant]
     Indication: ATRIAL FLUTTER
     Dosage: 12.5-25 MG, UNKNOWN/D
     Route: 048
  31. SIMVASTATIN [Concomitant]
     Indication: HYPERCHOLESTEROLAEMIA
     Dosage: 20-80 MG, UID/QD
     Route: 048
     Dates: start: 20080512, end: 20080718
  32. BENADRYL [Concomitant]
     Indication: VOMITING
  33. CYCLOSPORINE [Suspect]
     Indication: IMMUNOSUPPRESSION
     Dosage: 300 MG, Q12 HOURS
     Route: 048
     Dates: start: 20080527, end: 20080709
  34. ACYCLOVIR [Concomitant]
     Indication: HERPES ZOSTER
  35. BUDESONIDE [Concomitant]
     Indication: GRAFT VERSUS HOST DISEASE
     Dosage: 3 MG, BID
     Route: 048
     Dates: start: 20080630, end: 20080718
  36. PROGRAF [Suspect]
     Indication: PROPHYLAXIS AGAINST GRAFT VERSUS HOST DISEASE
     Dosage: 2 - 2.5 MG BID
     Route: 048
     Dates: start: 20080704, end: 20080717
  37. CYCLOSPORINE [Suspect]
     Dosage: 450 MG, BID
     Route: 048
     Dates: start: 20080527, end: 20080709
  38. MYCOPHENOLATE MOFETIL [Suspect]
     Indication: PRODUCT USED FOR UNKNOWN INDICATION
     Dosage: 1250 MG, Q12 HOURS
     Route: 048
  39. BACTRIM DS [Concomitant]
     Indication: PNEUMOCYSTIS JIROVECI PNEUMONIA
     Dosage: 1 DF, BID
     Route: 048
     Dates: start: 20080630, end: 20080718
  40. METOPROLOL [Concomitant]
     Indication: HYPERTENSION
     Dosage: 25 MG, BID
     Route: 048
     Dates: start: 20080606, end: 20080717
  41. DIGOXIN [Concomitant]
     Indication: PRODUCT USED FOR UNKNOWN INDICATION
     Dosage: 0.125 MG, UID/QD
     Route: 048
  42. URSODIOL [Concomitant]
     Indication: HEPATOTOXICITY
     Dosage: 600 MG, BID
     Route: 048
     Dates: start: 20080424, end: 20080718
  43. URSODIOL [Concomitant]
     Dosage: 600 MG, BID
     Route: 048
     Dates: start: 20080730
  44. ATIVAN [Concomitant]
     Indication: PRODUCT USED FOR UNKNOWN INDICATION
     Dosage: 05-2 MG Q4 HOURS AS NEEDED
     Route: 048
  45. BENADRYL [Concomitant]
     Indication: CHILLS
     Dosage: 25-50 MG Q4 HOURS AS NEEDED
     Route: 048
     Dates: start: 22080527, end: 20080723
  46. BUDESONIDE [Concomitant]
     Dosage: 3 MG, BID
     Route: 048
     Dates: start: 20080726
  47. LOVENOX [Concomitant]
     Indication: PULMONARY EMBOLISM
     Dosage: 120-80 MG
     Route: 058
     Dates: start: 20080624, end: 20080723

REACTIONS (14)
  - METABOLIC ACIDOSIS [None]
  - NEUTROPHIL COUNT DECREASED [None]
  - PARKINSONISM [None]
  - RENAL TUBULAR ACIDOSIS [None]
  - PNEUMONIA ASPIRATION [None]
  - GASTROINTESTINAL HAEMORRHAGE [None]
  - ORTHOSTATIC HYPOTENSION [None]
  - DIZZINESS [None]
  - FAILURE TO THRIVE [None]
  - OFF LABEL USE [None]
  - RENAL FAILURE [None]
  - ATRIAL FIBRILLATION [None]
  - LEUKOPENIA [None]
  - HYPERTENSION [None]
